FAERS Safety Report 24058180 (Version 5)
Quarter: 2025Q4

REPORT INFORMATION
  Report Type: Spontaneous
  Country: US (occurrence: US)
  Receive Date: 20240708
  Receipt Date: 20251014
  Transmission Date: 20260117
  Serious: No
  Sender: BRISTOL-MYERS SQUIBB COMPANY
  Company Number: US-BRISTOL-MYERS SQUIBB COMPANY-2024-107632

PATIENT
  Age: 55 Year
  Sex: Female

DRUGS (5)
  1. ORENCIA [Suspect]
     Active Substance: ABATACEPT
     Indication: Rheumatoid arthritis
     Dates: start: 202309
  2. ORENCIA [Suspect]
     Active Substance: ABATACEPT
     Indication: Myelodysplastic syndrome with single lineage dysplasia
     Dates: start: 202309
  3. ORENCIA [Suspect]
     Active Substance: ABATACEPT
     Dates: start: 202309
  4. ORENCIA [Suspect]
     Active Substance: ABATACEPT
     Dates: start: 202309
  5. ORENCIA [Suspect]
     Active Substance: ABATACEPT
     Dates: start: 202309

REACTIONS (2)
  - Pain [Unknown]
  - General physical health deterioration [Unknown]
